FAERS Safety Report 5978032-1 (Version None)
Quarter: 2008Q4

REPORT INFORMATION
  Report Type: 
  Country: None (occurrence: None)
  Receive Date: 20081128
  Receipt Date: 20081114
  Transmission Date: 20090506
  Serious: Yes (Death)
  Sender: FDA-Public Use
  Company Number: GXKR2008PL10974

PATIENT
  Age: 84 Year
  Sex: Female
  Weight: 58 kg

DRUGS (4)
  1. KETOPROFEN [Suspect]
     Indication: OSTEOARTHRITIS
     Dosage: 100 MG, TID, ORAL
     Route: 048
     Dates: start: 20081003, end: 20081006
  2. MEFENAMIC ACID [Suspect]
     Indication: OSTEOARTHRITIS
     Dosage: 250 MG, TID, ORAL
     Route: 048
     Dates: start: 20081003, end: 20081006
  3. PERINDOPRIL ERBUMINE [Suspect]
     Indication: HYPERTENSION
     Dosage: 4 MG/DAY, ORAL
     Route: 048
     Dates: end: 20081006
  4. DIGOXIN [Concomitant]

REACTIONS (1)
  - RENAL FAILURE ACUTE [None]
